FAERS Safety Report 5966497-0 (Version None)
Quarter: 2008Q4

REPORT INFORMATION
  Report Type: 
  Country: None (occurrence: None)
  Receive Date: 20081119
  Receipt Date: 20080722
  Transmission Date: 20090506
  Serious: No
  Sender: FDA-Public Use
  Company Number: WAES 0807USA04327

PATIENT

DRUGS (2)
  1. JANUVIA [Suspect]
     Dosage: PO
     Route: 048
  2. METFORMIN HCL [Concomitant]

REACTIONS (3)
  - DIARRHOEA [None]
  - NAUSEA [None]
  - PAIN [None]
